FAERS Safety Report 8349161 (Version 10)
Quarter: 2017Q1

REPORT INFORMATION
  Report Type: Spontaneous
  Country: US (occurrence: US)
  Receive Date: 20120123
  Receipt Date: 20170113
  Transmission Date: 20170429
  Serious: Yes (Hospitalization, Disabling, Other)
  Sender: FDA-Public Use
  Company Number: US-009507513-1201USA02538

PATIENT
  Sex: Female
  Weight: 77.56 kg

DRUGS (5)
  1. FOSAMAX PLUS D [Suspect]
     Active Substance: ALENDRONATE SODIUM\CHOLECALCIFEROL
     Indication: OSTEOPOROSIS
     Dosage: UNK MG, UNK
     Route: 048
     Dates: start: 20060214
  2. FOSAMAX [Suspect]
     Active Substance: ALENDRONATE SODIUM
     Indication: BONE DENSITY DECREASED
     Dosage: 35 MG, QW
     Route: 048
     Dates: start: 20021011
  3. FOSAMAX [Suspect]
     Active Substance: ALENDRONATE SODIUM
     Dosage: 70 MG, UNK
     Route: 048
     Dates: start: 200601, end: 2009
  4. ALENDRONATE SODIUM. [Suspect]
     Active Substance: ALENDRONATE SODIUM
     Indication: BONE DENSITY DECREASED
     Dosage: 70 MG, QW
     Route: 048
     Dates: start: 20081020, end: 20100301
  5. FOSAMAX [Suspect]
     Active Substance: ALENDRONATE SODIUM
     Indication: BONE DENSITY DECREASED
     Dosage: 70 MG, QW
     Route: 048
     Dates: start: 200210, end: 200510

REACTIONS (54)
  - Bone disorder [Unknown]
  - Femur fracture [Unknown]
  - Pneumonia [Unknown]
  - Hypokalaemia [Recovering/Resolving]
  - Fall [Unknown]
  - Tooth disorder [Unknown]
  - Nail disorder [Unknown]
  - Osteoarthritis [Unknown]
  - Panic attack [Unknown]
  - Osteopenia [Unknown]
  - Insomnia [Unknown]
  - Plantar fasciitis [Unknown]
  - Haemorrhagic anaemia [Unknown]
  - Postoperative wound infection [Unknown]
  - Haematoma evacuation [Unknown]
  - Endometrial disorder [Unknown]
  - Drug hypersensitivity [Unknown]
  - Coagulopathy [Unknown]
  - Breast disorder [Unknown]
  - Arthritis [Unknown]
  - Wound infection staphylococcal [Unknown]
  - Haematoma [Unknown]
  - Impaired healing [Unknown]
  - Adverse event [Unknown]
  - Claustrophobia [Unknown]
  - Weight decreased [Unknown]
  - Device failure [Unknown]
  - Tachycardia [Recovering/Resolving]
  - Tooth disorder [Unknown]
  - Ovarian disorder [Unknown]
  - Gait disturbance [Unknown]
  - Nausea [Unknown]
  - Foot deformity [Unknown]
  - Constipation [Unknown]
  - Acute kidney injury [Recovered/Resolved]
  - Rash [Unknown]
  - Urinary tract infection [Unknown]
  - Insomnia [Unknown]
  - Adjustment disorder with depressed mood [Unknown]
  - Hypersensitivity [Unknown]
  - Anxiety [Unknown]
  - Osteoporosis [Unknown]
  - Gastrooesophageal reflux disease [Unknown]
  - Bone density decreased [Unknown]
  - Pain in extremity [Unknown]
  - Blood creatine phosphokinase MB increased [Recovered/Resolved]
  - Onychomycosis [Unknown]
  - Arthralgia [Unknown]
  - Fracture nonunion [Unknown]
  - Fracture nonunion [Unknown]
  - Pain in extremity [Unknown]
  - Hallucination [Unknown]
  - Urinary tract infection [Unknown]
  - Vitamin B12 deficiency [Unknown]

NARRATIVE: CASE EVENT DATE: 20040909
